FAERS Safety Report 9805034 (Version 1)
Quarter: 2014Q1

REPORT INFORMATION
  Report Type: Spontaneous
  Country: JP (occurrence: JP)
  Receive Date: 20140109
  Receipt Date: 20140109
  Transmission Date: 20141002
  Serious: Yes (Death, Other)
  Sender: FDA-Public Use
  Company Number: JP-ACCORD-021188

PATIENT
  Age: 74 Year
  Sex: Male

DRUGS (4)
  1. IRINOTECAN HYDROCHLORIDE [Suspect]
     Indication: RECTAL CANCER
  2. BEVACIZUMAB [Suspect]
     Indication: RECTAL CANCER
  3. 5-FLUOROURACIL [Suspect]
     Indication: RECTAL CANCER
  4. FOLINIC ACID [Suspect]
     Indication: RECTAL CANCER

REACTIONS (2)
  - Hepatitis B [Unknown]
  - Hepatic failure [Fatal]
